FAERS Safety Report 5570092-5 (Version None)
Quarter: 2007Q4

REPORT INFORMATION
  Report Type: 
  Country: None (occurrence: None)
  Receive Date: 20071218
  Receipt Date: 20071130
  Transmission Date: 20080405
  Serious: Yes (Other)
  Sender: FDA-Public Use
  Company Number: S07-NLD-06291-01

PATIENT
  Age: 70 Year
  Sex: Female

DRUGS (7)
  1. CITALOPRAM HYDROBROMIDE [Suspect]
     Indication: ANXIETY
     Dosage: 20 MG QD PO
     Route: 048
     Dates: start: 20070920, end: 20071024
  2. CITALOPRAM HYDROBROMIDE [Suspect]
     Indication: DEPRESSION
     Dosage: 20 MG QD PO
     Route: 048
     Dates: start: 20070920, end: 20071024
  3. CITALOPRAM HYDROBROMIDE [Suspect]
     Indication: PANIC REACTION
     Dosage: 20 MG QD PO
     Route: 048
     Dates: start: 20070920, end: 20071024
  4. MIRTAZAPINUM (MIRTAZAPINE)\ [Concomitant]
  5. LORAZEPAM [Concomitant]
  6. BISOPROLOLI (BISOPROLOL) [Concomitant]
  7. PERINDOPRIL ERBUMINE [Concomitant]

REACTIONS (3)
  - BLISTER [None]
  - ERYTHEMA [None]
  - RASH VESICULAR [None]
